FAERS Safety Report 20173963 (Version 1)
Quarter: 2021Q4

REPORT INFORMATION
  Report Type: Spontaneous
  Country: ZA (occurrence: ZA)
  Receive Date: 20211213
  Receipt Date: 20211213
  Transmission Date: 20220303
  Serious: Yes (Other)
  Sender: FDA-Public Use
  Company Number: ZA-MLMSERVICE-20211125-3242255-1

PATIENT

DRUGS (6)
  1. DOXORUBICIN HYDROCHLORIDE [Suspect]
     Active Substance: DOXORUBICIN HYDROCHLORIDE
     Indication: Diffuse large B-cell lymphoma
     Dosage: 350 MILLIGRAM/SQ. METER, 7 CYCLICAL, ON DAY 1
     Route: 042
     Dates: start: 201904
  2. BLEOMYCIN SULFATE [Suspect]
     Active Substance: BLEOMYCIN SULFATE
     Indication: Diffuse large B-cell lymphoma
     Dosage: 10 MILLIGRAM/SQ. METER, WEEKLY, ON D1
     Route: 042
  3. VINCRISTINE [Suspect]
     Active Substance: VINCRISTINE
     Indication: Diffuse large B-cell lymphoma
     Dosage: 1.4 MILLIGRAM/SQ. METER, 7 CYCLICAL, D1
     Route: 042
     Dates: start: 201904
  4. PREDNISONE [Suspect]
     Active Substance: PREDNISONE
     Indication: Diffuse large B-cell lymphoma
     Dosage: 300 MILLIGRAM, 7 CYCLICAL, 100 MG PO DAILY D1-D5
     Route: 048
     Dates: start: 201904
  5. RITUXIMAB [Suspect]
     Active Substance: RITUXIMAB
     Indication: Diffuse large B-cell lymphoma
     Dosage: 2625 MILLIGRAM/SQ. METER, 7 CYCLICAL, ON DAY 1
     Route: 042
     Dates: start: 201904
  6. CYCLOPHOSPHAMIDE [Suspect]
     Active Substance: CYCLOPHOSPHAMIDE
     Indication: Diffuse large B-cell lymphoma
     Dosage: 5250 MILLIGRAM/SQ. METER, 7 CYCLICAL, ON DAY 1
     Route: 042
     Dates: start: 201904

REACTIONS (4)
  - Cardiac dysfunction [Unknown]
  - Neutropenia [Unknown]
  - Myelosuppression [Unknown]
  - Flagellate dermatitis [Unknown]
